FAERS Safety Report 20122730 (Version 2)
Quarter: 2021Q4

REPORT INFORMATION
  Report Type: Other
  Country: US (occurrence: None)
  Receive Date: 20211128
  Receipt Date: 20211203
  Transmission Date: 20220303
  Serious: Yes (Hospitalization)
  Sender: FDA-Public Use
  Company Number: US-ROCHE-2965600

PATIENT
  Sex: Female

DRUGS (2)
  1. XELODA [Suspect]
     Active Substance: CAPECITABINE
     Indication: Colon cancer
     Dosage: TAKE 3 TABLET(S) WITH BREAKFAST AND SUPPER ON DAYS 1-14 OF A 21 DAY CYCLE
     Route: 048
  2. XELODA [Suspect]
     Active Substance: CAPECITABINE
     Dosage: TAKE 3 TABLET BY MOUTH TWICE DAILY ON DAYS  1-14 OF A 21 DAYS CYCLE
     Route: 048

REACTIONS (1)
  - Tumour haemorrhage [Unknown]
